FAERS Safety Report 5066055-9 (Version None)
Quarter: 2006Q3

REPORT INFORMATION
  Report Type: 
  Country: None (occurrence: None)
  Receive Date: 20060731
  Receipt Date: 20060731
  Transmission Date: 20061208
  Serious: Yes (Life-Threatening, Hospitalization)
  Sender: FDA-Public Use
  Company Number: None

PATIENT
  Age: 47 Year
  Sex: Female

DRUGS (5)
  1. PHENYTOIN [Suspect]
     Indication: CONVULSION
     Dosage: 300 MG QHS PO
     Route: 048
  2. PREDNISONE TAPER [Concomitant]
  3. AMBIEN [Concomitant]
  4. PERCOCET [Concomitant]
  5. MORPHINE [Concomitant]

REACTIONS (8)
  - ANAEMIA [None]
  - BLOOD CREATINE INCREASED [None]
  - CATHETER RELATED INFECTION [None]
  - DRUG HYPERSENSITIVITY [None]
  - EOSINOPHIL COUNT INCREASED [None]
  - HYPERSENSITIVITY [None]
  - NEPHRITIS INTERSTITIAL [None]
  - STAPHYLOCOCCAL BACTERAEMIA [None]
